FAERS Safety Report 9290686 (Version 1)
Quarter: 2013Q2

REPORT INFORMATION
  Report Type: Report from Study
  Country: CA (occurrence: CA)
  Receive Date: 20130515
  Receipt Date: 20130515
  Transmission Date: 20140414
  Serious: Yes (Hospitalization)
  Sender: FDA-Public Use
  Company Number: CA-OPTIMER PHARMACEUTICALS, INC.-20110027

PATIENT
  Sex: 0

DRUGS (5)
  1. FIDAXOMICIN [Suspect]
     Indication: CLOSTRIDIAL INFECTION
     Dosage: 200 MG, BID
     Route: 048
     Dates: start: 20110819, end: 20110829
  2. VANCOMYCIN [Concomitant]
     Indication: CLOSTRIDIAL INFECTION
     Dosage: 250 MG, QID
     Route: 048
     Dates: start: 20110805, end: 20110819
  3. VANCOMYCIN [Concomitant]
     Dosage: UNK
     Route: 048
     Dates: start: 201109
  4. LANSOPRAZOLE [Concomitant]
     Dosage: 30 MG, QD
     Route: 048
  5. VENLAFAXINE HYDROCHLORIDE [Concomitant]
     Dosage: 75 MG, QD
     Route: 048

REACTIONS (4)
  - Clostridium difficile infection [Recovered/Resolved]
  - Disease recurrence [Recovered/Resolved]
  - Diarrhoea [Recovered/Resolved]
  - Dehydration [Recovered/Resolved]
